FAERS Safety Report 7265463-5 (Version None)
Quarter: 2011Q1

REPORT INFORMATION
  Report Type: 
  Country: None (occurrence: None)
  Receive Date: 20110131
  Receipt Date: 20110121
  Transmission Date: 20110831
  Serious: No
  Sender: FDA-Public Use
  Company Number: US-JNJFOC-20110106449

PATIENT
  Sex: Male
  Weight: 86.18 kg

DRUGS (2)
  1. INVEGA SUSTENNA [Suspect]
     Indication: SCHIZOPHRENIA
     Route: 030
  2. SEROQUEL [Concomitant]
     Indication: ILL-DEFINED DISORDER
     Route: 065

REACTIONS (9)
  - MUSCULAR WEAKNESS [None]
  - FATIGUE [None]
  - BLOOD TESTOSTERONE DECREASED [None]
  - HYPOAESTHESIA [None]
  - SEXUAL DYSFUNCTION [None]
  - ASTHENIA [None]
  - MUSCLE SPASMS [None]
  - INAPPROPRIATE SCHEDULE OF DRUG ADMINISTRATION [None]
  - TREMOR [None]
